FAERS Safety Report 16919880 (Version 1)
Quarter: 2019Q4

REPORT INFORMATION
  Report Type: Spontaneous
  Country: AU (occurrence: AU)
  Receive Date: 20191015
  Receipt Date: 20191015
  Transmission Date: 20200122
  Serious: Yes (Other)
  Sender: FDA-Public Use
  Company Number: AU-PFIZER INC-2019442084

PATIENT
  Sex: Female

DRUGS (3)
  1. PROGYNOVA [ESTRADIOL VALERATE] [Concomitant]
     Active Substance: ESTRADIOL VALERATE
     Indication: PROPHYLAXIS
  2. RALOVERA [Suspect]
     Active Substance: MEDROXYPROGESTERONE ACETATE
     Indication: MENSTRUAL CYCLE MANAGEMENT
     Dosage: 10 MG, UNK
  3. RALOVERA [Suspect]
     Active Substance: MEDROXYPROGESTERONE ACETATE
     Indication: BACK PAIN
     Dosage: 5 MG, UNK

REACTIONS (4)
  - Drug ineffective [Unknown]
  - Anaemia [Unknown]
  - Menorrhagia [Unknown]
  - Pelvic inflammatory disease [Unknown]
